FAERS Safety Report 5671929-1 (Version None)
Quarter: 2008Q1

REPORT INFORMATION
  Report Type: 
  Country: None (occurrence: None)
  Receive Date: 20080319
  Receipt Date: 20080206
  Transmission Date: 20080703
  Serious: No
  Sender: FDA-Public Use
  Company Number: US-BAYER-200813620NA

PATIENT
  Age: 62 Year
  Sex: Female

DRUGS (2)
  1. MAGNEVIST [Suspect]
     Indication: NUCLEAR MAGNETIC RESONANCE IMAGING
     Route: 042
     Dates: start: 20080206, end: 20080206
  2. SEDATION [Concomitant]
     Dates: start: 20080206, end: 20080206

REACTIONS (1)
  - VOMITING [None]
